FAERS Safety Report 25682861 (Version 1)
Quarter: 2025Q3

REPORT INFORMATION
  Report Type: Report from Study
  Country: US (occurrence: US)
  Receive Date: 20250814
  Receipt Date: 20250814
  Transmission Date: 20251021
  Serious: Yes (Hospitalization, Other)
  Sender: GILEAD
  Company Number: US-GILEAD-2025-0723770

PATIENT
  Sex: Female

DRUGS (1)
  1. AZTREONAM LYSINE [Suspect]
     Active Substance: AZTREONAM LYSINE
     Indication: Product used for unknown indication
     Dosage: TAKE 1 ML (75 MG TOTAL) BY NEBULIZATION 3 (THREE) TIMES A DAY. USE 28 DAYS ON AND 28 DAYS OF
     Route: 055
     Dates: start: 20190418

REACTIONS (4)
  - Cystic fibrosis [Not Recovered/Not Resolved]
  - Pneumonia pseudomonal [Not Recovered/Not Resolved]
  - Diarrhoea [Unknown]
  - Sleep disorder [Unknown]
